FAERS Safety Report 20414165 (Version 1)
Quarter: 2022Q1

REPORT INFORMATION
  Report Type: Spontaneous
  Country: JP (occurrence: JP)
  Receive Date: 20220201
  Receipt Date: 20220201
  Transmission Date: 20220423
  Serious: Yes (Hospitalization)
  Sender: FDA-Public Use
  Company Number: JP-ONO-2020JP028897

PATIENT
  Age: 62 Year
  Sex: Male

DRUGS (3)
  1. PARSABIV [Suspect]
     Active Substance: ETELCALCETIDE HYDROCHLORIDE
     Indication: Hyperparathyroidism secondary
     Dosage: 7.5 MILLIGRAM, QWK
     Route: 010
  2. PARSABIV [Suspect]
     Active Substance: ETELCALCETIDE HYDROCHLORIDE
     Dosage: 5 MILLIGRAM
     Route: 010
  3. MAXACALCITOL [Suspect]
     Active Substance: MAXACALCITOL
     Indication: Hyperparathyroidism secondary
     Dosage: 7.5 MUG, QW
     Route: 065

REACTIONS (3)
  - Hypercalcaemia [Recovering/Resolving]
  - Low turnover osteopathy [Recovering/Resolving]
  - Blood parathyroid hormone decreased [Recovering/Resolving]
